FAERS Safety Report 11443853 (Version 1)
Quarter: 2015Q3

REPORT INFORMATION
  Report Type: Report from Study
  Country: US (occurrence: US)
  Receive Date: 20150901
  Receipt Date: 20150901
  Transmission Date: 20151125
  Serious: No
  Sender: FDA-Public Use
  Company Number: US-AMGEN-USASP2015087289

PATIENT
  Age: 58 Year
  Sex: Female

DRUGS (3)
  1. PREDNISONE. [Concomitant]
     Active Substance: PREDNISONE
     Indication: VOCAL CORD DISORDER
     Dosage: UNK
     Dates: start: 20150724, end: 20150822
  2. PREDNISONE. [Concomitant]
     Active Substance: PREDNISONE
     Indication: LARYNGITIS
  3. ENBREL [Suspect]
     Active Substance: ETANERCEPT
     Indication: RHEUMATOID ARTHRITIS
     Dosage: 50 MG, QWK
     Route: 065

REACTIONS (2)
  - Laryngitis [Unknown]
  - Vocal cord disorder [Unknown]
